FAERS Safety Report 10057793 (Version 2)
Quarter: 2014Q2

REPORT INFORMATION
  Report Type: Spontaneous
  Country: US (occurrence: US)
  Receive Date: 20140404
  Receipt Date: 20140527
  Transmission Date: 20141212
  Serious: Yes (Hospitalization, Disabling, Other)
  Sender: FDA-Public Use
  Company Number: US-009507513-1403USA012933

PATIENT
  Age: 27 Year
  Sex: Female
  Weight: 82.86 kg

DRUGS (3)
  1. NEXPLANON [Suspect]
     Indication: CONTRACEPTION
     Dosage: UNK
     Route: 059
     Dates: start: 20140320
  2. ALPRAZOLAM [Concomitant]
  3. RISPERDAL [Concomitant]

REACTIONS (8)
  - Palpitations [Recovering/Resolving]
  - Rhinorrhoea [Recovering/Resolving]
  - Sinus congestion [Recovering/Resolving]
  - Hypersensitivity [Recovering/Resolving]
  - Hypoaesthesia [Recovering/Resolving]
  - Hot flush [Recovering/Resolving]
  - Hypoaesthesia [Recovering/Resolving]
  - Heart rate increased [Unknown]
